FAERS Safety Report 13857273 (Version 4)
Quarter: 2018Q1

REPORT INFORMATION
  Report Type: Report from Study
  Country: US (occurrence: US)
  Receive Date: 20170810
  Receipt Date: 20180125
  Transmission Date: 20180508
  Serious: No
  Sender: FDA-Public Use
  Company Number: US-AMGEN-USASL2017097176

PATIENT
  Age: 76 Year
  Sex: Female

DRUGS (2)
  1. REPATHA [Suspect]
     Active Substance: EVOLOCUMAB
     Indication: BLOOD CHOLESTEROL INCREASED
  2. REPATHA [Suspect]
     Active Substance: EVOLOCUMAB
     Indication: HYPERCHOLESTEROLAEMIA
     Dosage: 140 MG, Q2WK
     Route: 065
     Dates: start: 2017, end: 201707

REACTIONS (15)
  - Dysphonia [Unknown]
  - Rhinorrhoea [Unknown]
  - Bone pain [Unknown]
  - Restless legs syndrome [Recovered/Resolved]
  - Pain in extremity [Recovered/Resolved]
  - Insomnia [Unknown]
  - Asthenia [Unknown]
  - Throat irritation [Unknown]
  - Epistaxis [Unknown]
  - Oropharyngeal pain [Recovered/Resolved]
  - Swollen tongue [Unknown]
  - Drug effect incomplete [Unknown]
  - Discomfort [Unknown]
  - Muscular weakness [Recovered/Resolved]
  - Sinusitis [Unknown]
